FAERS Safety Report 8592346-0 (Version None)
Quarter: 2012Q3

REPORT INFORMATION
  Report Type: 
  Country: None (occurrence: None)
  Receive Date: 20120814
  Receipt Date: 20120802
  Transmission Date: 20120928
  Serious: Yes (Other)
  Sender: FDA-Public Use
  Company Number: JP-PFIZER INC-2012189953

PATIENT

DRUGS (4)
  1. ALPRAZOLAM [Suspect]
     Dosage: UNK
     Route: 048
  2. FLUVOXAMINE MALEATE [Suspect]
     Dosage: UNK
     Route: 048
  3. DOGMATYL [Suspect]
     Dosage: UNK
     Route: 048
  4. LENDORMIN [Suspect]
     Dosage: UNK
     Route: 048

REACTIONS (1)
  - TOXICITY TO VARIOUS AGENTS [None]
